FAERS Safety Report 8824937 (Version 1)
Quarter: 2012Q4

REPORT INFORMATION
  Report Type: Report from Study
  Country: NL (occurrence: NL)
  Receive Date: 20121004
  Receipt Date: 20121004
  Transmission Date: 20130627
  Serious: Yes (Hospitalization)
  Sender: FDA-Public Use
  Company Number: NL-JNJFOC-20110301345

PATIENT
  Age: 68 Year
  Sex: Female
  Weight: 60 kg

DRUGS (6)
  1. USTEKINUMAB [Suspect]
     Indication: SARCOIDOSIS
     Route: 058
     Dates: start: 20110215
  2. USTEKINUMAB [Suspect]
     Indication: SARCOIDOSIS
     Route: 058
     Dates: start: 20100608
  3. ALENDRONINEZUUR [Concomitant]
  4. RANITIDINE [Concomitant]
  5. CALCIUM CARBONATE VITAMIN D [Concomitant]
  6. PREDNISONE [Concomitant]
     Route: 048
     Dates: start: 20110119

REACTIONS (1)
  - Pneumonia [Recovered/Resolved]
